FAERS Safety Report 7302603-3 (Version None)
Quarter: 2011Q1

REPORT INFORMATION
  Report Type: 
  Country: None (occurrence: None)
  Receive Date: 20110218
  Receipt Date: 20110215
  Transmission Date: 20110831
  Serious: Yes (Hospitalization, Other)
  Sender: FDA-Public Use
  Company Number: US-AMGEN-USASP2010001309

PATIENT
  Age: 58 Year
  Sex: Male

DRUGS (32)
  1. NPLATE [Suspect]
     Indication: IDIOPATHIC THROMBOCYTOPENIC PURPURA
     Dosage: 10 A?G/KG, QWK
     Route: 058
     Dates: start: 20090525, end: 20100824
  2. STEROID ANTIBACTERIALS [Concomitant]
  3. RED BLOOD CELLS [Concomitant]
  4. LIPITOR [Concomitant]
     Dosage: 40 MG, QD
     Route: 048
  5. CELLCEPT [Concomitant]
  6. COUMADIN [Concomitant]
  7. PREDNISONE [Concomitant]
  8. FLUCONAZOLE [Concomitant]
     Dosage: 200 MG, QD
     Route: 048
  9. CODEINE [Concomitant]
  10. INSULIN [Concomitant]
     Dosage: 8 UNK, UNK
  11. COMBIVENT [Concomitant]
  12. CORTICOSTEROIDS [Concomitant]
  13. BIOTENE                            /00203502/ [Concomitant]
     Dosage: 5 ML, UNK
     Route: 048
  14. HEPARIN [Concomitant]
  15. RITUXAN [Concomitant]
  16. PANTOPRAZOLE [Concomitant]
     Dosage: 40 MG, BID
     Route: 048
  17. POTASSIUM CHLORIDE [Concomitant]
  18. ACYCLOVIR [Concomitant]
     Dosage: 400 MG, BID
     Route: 048
  19. MYCOPHENOLATE [Concomitant]
     Dosage: 500 MG, BID
     Route: 048
  20. SUCRALFATE [Concomitant]
     Dosage: UNK UNK, QID
     Route: 048
  21. COUGH SUPPRESSANTS EXCL. COMB. WITH EXPECTORA [Concomitant]
  22. METOPROLOL SUCCINATE [Concomitant]
     Dosage: 12.5 MG, UNK
  23. TYLENOL (CAPLET) [Concomitant]
  24. AMINOCAPROIC ACID [Concomitant]
     Dosage: 16 ML, Q6H
     Route: 048
  25. NEXIUM [Concomitant]
     Dosage: 40 MG, UNK
  26. IMMUNOGLOBULINS [Concomitant]
     Dosage: UNK
     Dates: start: 20090514
  27. VINCRISTINE [Concomitant]
  28. DEXAMETHASONE                      /00016002/ [Concomitant]
     Dosage: 40 UNK, UNK
     Route: 042
     Dates: start: 20100506
  29. DIGOXIN [Concomitant]
     Dosage: .125 MG, QD
     Route: 048
  30. DOCUSATE SODIUM [Concomitant]
  31. MEPERIDINE HCL                     /00016301/ [Concomitant]
     Dosage: 25 MG/ML, UNK
  32. AMICAR [Concomitant]
     Dosage: UNK UNK, QH
     Route: 048

REACTIONS (26)
  - PNEUMONIA [None]
  - ANAEMIA [None]
  - THROMBOCYTOPENIA [None]
  - DIZZINESS POSTURAL [None]
  - DEEP VEIN THROMBOSIS [None]
  - PLEURAL EFFUSION [None]
  - RESTLESS LEGS SYNDROME [None]
  - PETECHIAE [None]
  - PRODUCTIVE COUGH [None]
  - MYOCARDIAL INFARCTION [None]
  - CORONARY ARTERY DISEASE [None]
  - DYSPNOEA [None]
  - MELAENA [None]
  - GASTROOESOPHAGEAL REFLUX DISEASE [None]
  - URINARY INCONTINENCE [None]
  - EPISTAXIS [None]
  - ATRIAL FIBRILLATION [None]
  - ORTHOSTATIC HYPOTENSION [None]
  - HYPOKALAEMIA [None]
  - GASTROINTESTINAL HAEMORRHAGE [None]
  - DIABETES MELLITUS [None]
  - URINARY TRACT INFECTION [None]
  - SYNCOPE [None]
  - MYALGIA [None]
  - HAEMATURIA [None]
  - DEPRESSION [None]
